FAERS Safety Report 6663104-9 (Version None)
Quarter: 2010Q2

REPORT INFORMATION
  Report Type: 
  Country: None (occurrence: None)
  Receive Date: 20100401
  Receipt Date: 20100329
  Transmission Date: 20101027
  Serious: Yes (Hospitalization, Other)
  Sender: FDA-Public Use
  Company Number: US-JNJFOC-20100305074

PATIENT
  Age: 44 Year
  Sex: Male
  Weight: 181.44 kg

DRUGS (1)
  1. STELARA [Suspect]
     Indication: PSORIASIS
     Route: 058

REACTIONS (12)
  - AGITATION [None]
  - CONFUSIONAL STATE [None]
  - DYSARTHRIA [None]
  - DYSPHEMIA [None]
  - HEADACHE [None]
  - IMMEDIATE POST-INJECTION REACTION [None]
  - MUSCULAR WEAKNESS [None]
  - NAUSEA [None]
  - PHOTOPHOBIA [None]
  - RASH GENERALISED [None]
  - SWELLING [None]
  - VISUAL IMPAIRMENT [None]
